FAERS Safety Report 8900785 (Version 1)
Quarter: 2012Q4

REPORT INFORMATION
  Report Type: 
  Country: CA (occurrence: CA)
  Receive Date: 20121109
  Receipt Date: 20121109
  Transmission Date: 20130627
  Serious: Yes (Other)
  Sender: FDA-Public Use
  Company Number: PHMT2007CA01481

PATIENT
  Age: 40 Year
  Sex: Female

DRUGS (1)
  1. SANDOSTATIN LAR [Suspect]
     Indication: CARCINOID TUMOUR
     Dosage: 30 mg, once every month
     Route: 030
     Dates: start: 20070524

REACTIONS (10)
  - Tongue paralysis [Recovered/Resolved]
  - Injection site mass [Recovered/Resolved]
  - Dry mouth [Recovered/Resolved]
  - Dysphagia [Recovered/Resolved]
  - Anxiety [Unknown]
  - Contusion [Recovered/Resolved]
  - Rash macular [Unknown]
  - Dry throat [Unknown]
  - Nausea [Unknown]
  - Injection site pain [Unknown]
